FAERS Safety Report 15807531 (Version 1)
Quarter: 2018Q4

REPORT INFORMATION
  Report Type: Spontaneous
  Country: US (occurrence: US)
  Receive Date: 20181214
  Receipt Date: 20181214
  Transmission Date: 20190205
  Serious: No
  Sender: FDA-Public Use
  Company Number: None

PATIENT
  Age: 74 Year
  Sex: Female

DRUGS (1)
  1. AFINITOR [Suspect]
     Active Substance: EVEROLIMUS
     Dates: start: 201806

REACTIONS (3)
  - Nasal congestion [None]
  - Sinus disorder [None]
  - Lacrimation increased [None]

NARRATIVE: CASE EVENT DATE: 20181213
